FAERS Safety Report 15894540 (Version 1)
Quarter: 2019Q1

REPORT INFORMATION
  Report Type: Spontaneous
  Country: US (occurrence: US)
  Receive Date: 20190108
  Receipt Date: 20190108
  Transmission Date: 20190417
  Serious: No
  Sender: FDA-Public Use
  Company Number: None

PATIENT
  Age: 55 Year
  Sex: Male

DRUGS (1)
  1. EMPAGLIFLOZIN [Suspect]
     Active Substance: EMPAGLIFLOZIN
     Dosage: ?          OTHER FREQUENCY:AM;?
     Dates: start: 20181017, end: 20181029

REACTIONS (1)
  - Gingival swelling [None]

NARRATIVE: CASE EVENT DATE: 20181030
